FAERS Safety Report 4986730-1 (Version None)
Quarter: 2006Q2

REPORT INFORMATION
  Report Type: 
  Country: None (occurrence: None)
  Receive Date: 20060428
  Receipt Date: 20060123
  Transmission Date: 20061013
  Serious: Yes (Hospitalization, Disabling, Other)
  Sender: FDA-Public Use
  Company Number: US-MERCK-0601USA02712

PATIENT
  Age: 79 Year
  Sex: Male

DRUGS (1)
  1. VIOXX [Suspect]
     Indication: ARTHRALGIA
     Route: 048
     Dates: start: 20030101, end: 20040601

REACTIONS (13)
  - AGITATION [None]
  - ARTHRITIS [None]
  - CEREBRAL HAEMORRHAGE [None]
  - CONVULSION [None]
  - DEPRESSION [None]
  - DISABILITY [None]
  - INCONTINENCE [None]
  - ISCHAEMIC STROKE [None]
  - OEDEMA PERIPHERAL [None]
  - OSTEOARTHRITIS [None]
  - PARALYSIS [None]
  - SEBORRHOEIC DERMATITIS [None]
  - SOMNOLENCE [None]
